FAERS Safety Report 9473690 (Version 1)
Quarter: 2013Q3

REPORT INFORMATION
  Report Type: Spontaneous
  Country: US (occurrence: US)
  Receive Date: 20130823
  Receipt Date: 20130823
  Transmission Date: 20140515
  Serious: No
  Sender: FDA-Public Use
  Company Number: US-BAYER-2013-102174

PATIENT
  Age: 83 Year
  Sex: Male
  Weight: 68.03 kg

DRUGS (4)
  1. ALEVE TABLET [Suspect]
     Indication: BACK PAIN
     Dosage: 2 DF, PRN
     Route: 048
     Dates: start: 201304, end: 201304
  2. XANAX [Concomitant]
  3. ANTIDEPRESSANTS [Concomitant]
  4. CENTRUM SILVER [Concomitant]

REACTIONS (2)
  - Constipation [Recovered/Resolved]
  - Drug administration error [None]
